FAERS Safety Report 14239254 (Version 2)
Quarter: 2018Q3

REPORT INFORMATION
  Report Type: Spontaneous
  Country: US (occurrence: US)
  Receive Date: 20171130
  Receipt Date: 20180726
  Transmission Date: 20181010
  Serious: No
  Sender: FDA-Public Use
  Company Number: US-SA-2017SA171714

PATIENT
  Age: 30 Year
  Sex: Female

DRUGS (2)
  1. KEVZARA [Suspect]
     Active Substance: SARILUMAB
     Indication: RHEUMATOID ARTHRITIS
     Dosage: 200 MG,QOW
     Route: 058
     Dates: start: 20170815
  2. KEVZARA [Suspect]
     Active Substance: SARILUMAB
     Dosage: 200 UNK,QOW
     Route: 058
     Dates: start: 20180430

REACTIONS (2)
  - Unevaluable event [Unknown]
  - Drug ineffective [Unknown]
